FAERS Safety Report 6240634-5 (Version None)
Quarter: 2009Q2

REPORT INFORMATION
  Report Type: 
  Country: None (occurrence: None)
  Receive Date: 20090623
  Receipt Date: 20081119
  Transmission Date: 20091009
  Serious: No
  Sender: FDA-Public Use
  Company Number: US-ASTRAZENECA-2008UW25931

PATIENT
  Age: 6 Year
  Sex: Male

DRUGS (9)
  1. PULMICORT RESPULES [Suspect]
     Indication: COUGH
     Route: 055
     Dates: start: 20080401
  2. PULMICORT RESPULES [Suspect]
     Route: 055
     Dates: start: 20081001, end: 20081112
  3. PULMICORT RESPULES [Suspect]
     Route: 055
     Dates: start: 20081113
  4. PULMICORT RESPULES [Suspect]
     Route: 055
  5. VERAMIST [Concomitant]
  6. XYZAL [Concomitant]
  7. MIRALAX [Concomitant]
  8. CRYSTALLINE VIT B12 INJ [Concomitant]
  9. MULTIVITAMIN WITH MINERALS [Concomitant]

REACTIONS (1)
  - CHEST X-RAY ABNORMAL [None]
